FAERS Safety Report 6810218-6 (Version None)
Quarter: 2010Q2

REPORT INFORMATION
  Report Type: 
  Country: None (occurrence: None)
  Receive Date: 20100630
  Receipt Date: 20100624
  Transmission Date: 20101027
  Serious: Yes (Other)
  Sender: FDA-Public Use
  Company Number: US-PFIZER INC-2010063820

PATIENT
  Age: 24 Year
  Sex: Female
  Weight: 74.207 kg

DRUGS (6)
  1. DEPO-PROVERA [Suspect]
     Indication: CONTRACEPTION
     Route: 030
     Dates: start: 20080101
  2. DEPO-PROVERA [Suspect]
     Indication: DYSMENORRHOEA
     Dosage: UNK
     Route: 030
     Dates: start: 20091201
  3. VALTREX [Concomitant]
     Dosage: UNK
  4. FLEXERIL [Concomitant]
     Dosage: UNK
     Dates: start: 20091222
  5. FLONASE [Concomitant]
     Dosage: UNK
     Dates: start: 20100302
  6. ZITHROMAX [Concomitant]
     Dosage: UNK
     Dates: start: 20100302

REACTIONS (1)
  - BLINDNESS [None]
